FAERS Safety Report 4453377-5 (Version None)
Quarter: 2004Q3

REPORT INFORMATION
  Report Type: 
  Country: None (occurrence: None)
  Receive Date: 20040920
  Receipt Date: 20040910
  Transmission Date: 20050211
  Serious: Yes (Disabling)
  Sender: FDA-Public Use
  Company Number: NSADSS2002010407

PATIENT
  Sex: Male

DRUGS (4)
  1. REMINYL [Suspect]
     Route: 049
     Dates: start: 20020304
  2. REMINYL [Suspect]
     Route: 049
     Dates: start: 20020304
  3. SEROQUEL [Concomitant]
     Indication: ANTISOCIAL BEHAVIOUR
     Route: 065
  4. VALIUM [Concomitant]
     Indication: ANTISOCIAL BEHAVIOUR
     Dosage: 2.5 MG EVERY MORNING AND 10MG AT NIGHT.
     Route: 065

REACTIONS (3)
  - AGGRESSION [None]
  - CONFUSIONAL STATE [None]
  - MANIA [None]
